APPROVED DRUG PRODUCT: DICLOFENAC SODIUM
Active Ingredient: DICLOFENAC SODIUM
Strength: 50MG
Dosage Form/Route: TABLET, DELAYED RELEASE;ORAL
Application: A074432 | Product #002
Applicant: PLIVA INC
Approved: Jul 29, 1999 | RLD: No | RS: No | Type: DISCN